FAERS Safety Report 25752938 (Version 1)
Quarter: 2025Q3

REPORT INFORMATION
  Report Type: Spontaneous
  Country: JP (occurrence: JP)
  Receive Date: 20250902
  Receipt Date: 20250902
  Transmission Date: 20251020
  Serious: Yes (Death, Other)
  Sender: MERCK SHARP & DOHME LLC
  Company Number: JP-009507513-2325234

PATIENT
  Age: 8 Decade
  Sex: Male

DRUGS (1)
  1. PEMBROLIZUMAB [Suspect]
     Active Substance: PEMBROLIZUMAB

REACTIONS (4)
  - Death [Fatal]
  - Thyroid disorder [Unknown]
  - Malignant neoplasm progression [Unknown]
  - Rash pruritic [Unknown]
